FAERS Safety Report 8358732-9 (Version None)
Quarter: 2012Q2

REPORT INFORMATION
  Report Type: 
  Country: None (occurrence: None)
  Receive Date: 20120514
  Receipt Date: 20120503
  Transmission Date: 20120825
  Serious: Yes (Other)
  Sender: FDA-Public Use
  Company Number: GB-BAXTER-2012BAX004581

PATIENT
  Age: 32 Year
  Sex: Female
  Weight: 80 kg

DRUGS (6)
  1. PROGESTERONE [Concomitant]
  2. CYCLOGEST [Concomitant]
  3. PREDNISOLONE [Concomitant]
  4. INTRALIPID 10% [Suspect]
  5. ASPIRIN [Concomitant]
  6. KIOVIG [Suspect]

REACTIONS (4)
  - MATERNAL EXPOSURE DURING PREGNANCY [None]
  - FOETAL DEATH [None]
  - PREMATURE LABOUR [None]
  - PREMATURE DELIVERY [None]
